FAERS Safety Report 11622365 (Version 1)
Quarter: 2015Q4

REPORT INFORMATION
  Report Type: Spontaneous
  Country: US (occurrence: None)
  Receive Date: 20151009
  Receipt Date: 20151009
  Transmission Date: 20160304
  Serious: Yes (Hospitalization)
  Sender: FDA-Public Use
  Company Number: None

PATIENT
  Age: 54 Year
  Sex: Female

DRUGS (8)
  1. DICLOFENAC [Suspect]
     Active Substance: DICLOFENAC
     Indication: OSTEOARTHRITIS
     Dates: start: 20140204, end: 20140501
  2. HYDROCHLOROTHIAZIDE. [Concomitant]
     Active Substance: HYDROCHLOROTHIAZIDE
  3. ALBUTEROL. [Concomitant]
     Active Substance: ALBUTEROL
  4. AMOXICILLIN AND CLAVULANATE [Suspect]
     Active Substance: AMOXICILLIN\CLAVULANIC ACID
     Indication: EAR INFECTION
     Dates: start: 20140326, end: 20140331
  5. LORATADINE. [Concomitant]
     Active Substance: LORATADINE
  6. MELOXICAM. [Concomitant]
     Active Substance: MELOXICAM
  7. BECLOMETHASONE [Concomitant]
     Active Substance: BECLOMETHASONE
  8. SIMVASTATIN. [Concomitant]
     Active Substance: SIMVASTATIN

REACTIONS (5)
  - Pruritus [None]
  - Autoimmune hepatitis [None]
  - Bacterial infection [None]
  - Eosinophilia [None]
  - Drug-induced liver injury [None]

NARRATIVE: CASE EVENT DATE: 20140405
